FAERS Safety Report 4553618-X (Version None)
Quarter: 2004Q4

REPORT INFORMATION
  Report Type: 
  Country: None (occurrence: None)
  Receive Date: 20041227
  Receipt Date: 20041014
  Transmission Date: 20050328
  Serious: No
  Sender: FDA-Public Use
  Company Number: 04P-163-0277753

PATIENT
  Age: 59 Year
  Sex: Female
  Weight: 52.1637 kg

DRUGS (1)
  1. HUMIRA [Suspect]
     Indication: RHEUMATOID ARTHRITIS
     Dosage: 40 MG, 1 IN 2 WK, SUBCUTANEOUS
     Route: 058
     Dates: start: 20040901

REACTIONS (8)
  - ABDOMINAL PAIN UPPER [None]
  - BACK PAIN [None]
  - DECREASED APPETITE [None]
  - DIARRHOEA [None]
  - HEADACHE [None]
  - LACRIMATION INCREASED [None]
  - NAUSEA [None]
  - RHINORRHOEA [None]
